FAERS Safety Report 7360685-7 (Version None)
Quarter: 2011Q1

REPORT INFORMATION
  Report Type: 
  Country: None (occurrence: None)
  Receive Date: 20110318
  Receipt Date: 20091027
  Transmission Date: 20110831
  Serious: Yes (Other)
  Sender: FDA-Public Use
  Company Number: US-BAYER-200937688NA

PATIENT
  Sex: Male
  Weight: 69.841 kg

DRUGS (21)
  1. TRASYLOL [Suspect]
     Indication: PERICARDIAL OPERATION
     Dosage: 1 ML, 200 ML BOLUS, 50 ML DRIP
     Route: 042
     Dates: start: 20070518, end: 20070518
  2. TOPROL-XL [Concomitant]
  3. INSULIN [Concomitant]
     Dosage: 45 U, UNK
  4. COREG [Concomitant]
     Dosage: 12.5 MG, BID
     Route: 048
     Dates: start: 20060101
  5. UNKNOWN [Concomitant]
     Dosage: 1070 ML, UNK
     Dates: start: 20070518
  6. TRASYLOL [Suspect]
     Indication: MITRAL VALVE REPAIR
  7. AMPICILLIN [Concomitant]
     Indication: ENTEROCOCCAL BACTERAEMIA
     Dosage: UNK
     Route: 042
     Dates: start: 20070127, end: 20070301
  8. VANCOMYCIN HCL [Concomitant]
  9. HEPARIN [Concomitant]
  10. COREG [Concomitant]
     Dosage: 25 MG, BID
     Route: 048
  11. NOREPINEPHRINE BITARTRATE [Concomitant]
     Dosage: 697.99MCG PER INFUSION
  12. PLATELETS [Concomitant]
     Dosage: 577 ML, UNK
     Dates: start: 20070518
  13. GENTAMICIN [Concomitant]
     Indication: ENTEROCOCCAL BACTERAEMIA
     Dosage: UNK
     Route: 042
     Dates: start: 20070127, end: 20070301
  14. PROTAMINE SULFATE [Concomitant]
     Dosage: 350 MG, UNK
  15. NITROGLYCERIN [Concomitant]
     Dosage: 2052.92 MCG PER INFUSION
  16. CRYOPRECIPITATES [Concomitant]
     Dosage: 2 U, UNK
     Dates: start: 20070518
  17. LASIX [Concomitant]
     Dosage: 40 MG, QD
     Route: 048
  18. PLASMA [Concomitant]
     Dosage: 800 ML, UNK
     Dates: start: 20070518
  19. TRASYLOL [Suspect]
     Indication: AORTIC VALVE REPLACEMENT
  20. COZAAR [Concomitant]
  21. RED BLOOD CELLS [Concomitant]
     Dosage: 3 U, UNK
     Dates: start: 20070518

REACTIONS (7)
  - UNEVALUABLE EVENT [None]
  - RENAL FAILURE ACUTE [None]
  - INJURY [None]
  - MENTAL DISORDER [None]
  - RENAL FAILURE [None]
  - PAIN [None]
  - CEREBROVASCULAR ACCIDENT [None]
